FAERS Safety Report 9460444 (Version 3)
Quarter: 2014Q1

REPORT INFORMATION
  Report Type: Report from Study
  Country: ES (occurrence: DE)
  Receive Date: 20130815
  Receipt Date: 20140224
  Transmission Date: 20141002
  Serious: Yes (Death, Hospitalization)
  Sender: FDA-Public Use
  Company Number: DE-FRI-1000047654

PATIENT
  Sex: Female
  Weight: 80 kg

DRUGS (4)
  1. ACLIDINIUM [Suspect]
     Indication: CHRONIC OBSTRUCTIVE PULMONARY DISEASE
     Route: 055
     Dates: start: 20130311, end: 201304
  2. SALBUTAMOL [Concomitant]
     Dosage: 4 DF QID
     Route: 055
  3. VIANI 50/250 [Concomitant]
  4. MARCUMAR [Concomitant]
     Indication: ATRIAL FIBRILLATION

REACTIONS (4)
  - Cardiac failure congestive [Fatal]
  - Respiratory failure [Fatal]
  - Respiratory tract infection [Fatal]
  - Drug ineffective [Fatal]
